FAERS Safety Report 6041431-6 (Version None)
Quarter: 2009Q1

REPORT INFORMATION
  Report Type: 
  Country: None (occurrence: None)
  Receive Date: 20090116
  Receipt Date: 20081029
  Transmission Date: 20090719
  Serious: No
  Sender: FDA-Public Use
  Company Number: US-BRISTOL-MYERS SQUIBB COMPANY-14369326

PATIENT
  Age: 17 Year
  Sex: Female
  Weight: 77 kg

DRUGS (5)
  1. ABILIFY [Suspect]
     Indication: BIPOLAR DISORDER
     Dosage: INTERRUPTED + RESTARTED ON 7OCT08. 1/2 TAB ON DAY 1 AND 1/2 TAB ON DAY 2. THEN DISCONTINUED.
     Dates: start: 20070101
  2. ABILIFY [Suspect]
     Indication: SOCIAL PHOBIA
     Dosage: INTERRUPTED + RESTARTED ON 7OCT08. 1/2 TAB ON DAY 1 AND 1/2 TAB ON DAY 2. THEN DISCONTINUED.
     Dates: start: 20070101
  3. ABILIFY [Suspect]
     Indication: DEPRESSION
     Dosage: INTERRUPTED + RESTARTED ON 7OCT08. 1/2 TAB ON DAY 1 AND 1/2 TAB ON DAY 2. THEN DISCONTINUED.
     Dates: start: 20070101
  4. TOPAMAX [Suspect]
  5. LEXAPRO [Suspect]

REACTIONS (4)
  - AGGRESSION [None]
  - AGITATION [None]
  - CRYING [None]
  - FEELING JITTERY [None]
